FAERS Safety Report 8199065 (Version 3)
Quarter: 2013Q1

REPORT INFORMATION
  Report Type: Spontaneous
  Country: JP (occurrence: JP)
  Receive Date: 20111025
  Receipt Date: 20130304
  Transmission Date: 20140127
  Serious: Yes (Hospitalization)
  Sender: FDA-Public Use
  Company Number: JP-GLAXOSMITHKLINE-B0757111A

PATIENT
  Age: 79 None
  Sex: Male

DRUGS (9)
  1. REQUIP [Suspect]
     Indication: PARKINSON^S DISEASE
     Dosage: 2MG PER DAY
     Route: 048
     Dates: start: 20111012, end: 20111012
  2. REQUIP [Suspect]
     Indication: PARKINSON^S DISEASE
     Dosage: 1MG THREE TIMES PER DAY
     Route: 048
     Dates: start: 20111012, end: 20111017
  3. LARODOPA [Concomitant]
     Route: 065
  4. FP [Concomitant]
     Route: 065
  5. UNKNOWN DRUG [Concomitant]
     Dosage: .25MG THREE TIMES PER DAY
     Route: 048
     Dates: start: 20110929, end: 20110930
  6. UNKNOWN DRUG [Concomitant]
     Dosage: .5MG TWICE PER DAY
     Route: 048
     Dates: start: 20111001, end: 20111004
  7. UNKNOWN DRUG [Concomitant]
     Dosage: .5MG THREE TIMES PER DAY
     Route: 048
     Dates: start: 20111005, end: 20111011
  8. MADOPAR [Concomitant]
     Dosage: 1.5IUAX THREE TIMES PER DAY
     Route: 048
  9. ROCEPHIN [Concomitant]
     Dosage: 1G TWICE PER DAY
     Route: 042
     Dates: start: 20111014, end: 20111019

REACTIONS (13)
  - Neuroleptic malignant syndrome [Recovering/Resolving]
  - Pyrexia [Unknown]
  - Blood creatine phosphokinase increased [Unknown]
  - Somnolence [Unknown]
  - Dyskinesia [Unknown]
  - Renal failure [Unknown]
  - White blood cell count increased [Unknown]
  - C-reactive protein increased [Unknown]
  - Blood urea increased [Unknown]
  - Blood creatinine increased [Unknown]
  - Altered state of consciousness [Unknown]
  - Hyperhidrosis [Unknown]
  - Dyskinesia [Unknown]
